FAERS Safety Report 7609500-4 (Version None)
Quarter: 2011Q3

REPORT INFORMATION
  Report Type: 
  Country: None (occurrence: None)
  Receive Date: 20110714
  Receipt Date: 20110706
  Transmission Date: 20111222
  Serious: Yes (Other)
  Sender: FDA-Public Use
  Company Number: PHHY2011GB59885

PATIENT
  Age: 54 Year
  Sex: Female
  Weight: 89 kg

DRUGS (6)
  1. DIAZEPAM [Concomitant]
     Indication: DEPENDENCE
     Dosage: UNK
     Route: 048
     Dates: start: 20110201, end: 20110608
  2. ACETAMINOPHEN AND CODEINE PHOSPHATE [Concomitant]
     Dosage: 2 DF, QD4SDO
  3. CYCLIZINE [Concomitant]
     Indication: NAUSEA
     Dosage: 50 MG, TID
     Route: 048
  4. LANSOPRAZOLE [Concomitant]
     Indication: GASTROOESOPHAGEAL REFLUX DISEASE
     Dosage: 30 MG, BID
     Route: 048
  5. TRAMADOL HCL [Suspect]
     Indication: ANALGESIC THERAPY
     Dosage: 50 MG, QD4SDO
     Route: 048
     Dates: start: 20110603, end: 20110610
  6. ZOPICLONE [Concomitant]
     Indication: DEPENDENCE
     Dosage: 30 MG, QD
     Route: 048

REACTIONS (1)
  - INCREASED APPETITE [None]
